FAERS Safety Report 23629246 (Version 1)
Quarter: 2024Q1

REPORT INFORMATION
  Report Type: Spontaneous
  Country: QA (occurrence: None)
  Receive Date: 20240313
  Receipt Date: 20240313
  Transmission Date: 20240409
  Serious: Yes (Other)
  Sender: FDA-Public Use
  Company Number: QA-Unichem Pharmaceuticals (USA) Inc-UCM202403-000215

PATIENT
  Age: 41 Year
  Sex: Male

DRUGS (9)
  1. TIZANIDINE [Suspect]
     Active Substance: TIZANIDINE
     Indication: Myofascial pain syndrome
     Dates: start: 2020
  2. TIZANIDINE [Suspect]
     Active Substance: TIZANIDINE
     Dates: start: 202203
  3. TIZANIDINE [Suspect]
     Active Substance: TIZANIDINE
     Dosage: 20 TABLETS OF 4 MG DAILY FOR TWO WEEKS, TOTALING 80 MG DAILY
  4. TIZANIDINE [Suspect]
     Active Substance: TIZANIDINE
  5. GABAPENTIN [Concomitant]
     Active Substance: GABAPENTIN
     Indication: Myofascial pain syndrome
     Dosage: UNKNOWN
     Dates: start: 2020
  6. AMLODIPINE [Concomitant]
     Active Substance: AMLODIPINE BESYLATE
     Indication: Hypertension
     Dosage: UNKNOWN
  7. ENALAPRIL [Concomitant]
     Active Substance: ENALAPRIL
     Indication: Hypertension
     Dosage: UNKNOWN
  8. CLONAZEPAM [Concomitant]
     Active Substance: CLONAZEPAM
     Indication: Major depression
     Dosage: UNKNOWN
  9. CLONAZEPAM [Concomitant]
     Active Substance: CLONAZEPAM
     Indication: Generalised anxiety disorder

REACTIONS (14)
  - Tachypnoea [Recovered/Resolved]
  - Restlessness [Recovered/Resolved]
  - Palpitations [Recovered/Resolved]
  - Agitation [Recovered/Resolved]
  - Supraventricular tachycardia [Recovered/Resolved]
  - Nausea [Recovered/Resolved]
  - Drug withdrawal syndrome [Recovered/Resolved]
  - Vomiting [Recovered/Resolved]
  - Hypertension [Recovered/Resolved]
  - Anxiety [Recovered/Resolved]
  - Dyskinesia [Recovered/Resolved]
  - Intentional overdose [Unknown]
  - Product use in unapproved indication [Unknown]
  - Intentional product misuse [Unknown]
